FAERS Safety Report 9238388 (Version 1)
Quarter: 2013Q2

REPORT INFORMATION
  Report Type: Spontaneous
  Country: FR (occurrence: FR)
  Receive Date: 20130418
  Receipt Date: 20130418
  Transmission Date: 20140414
  Serious: Yes (Hospitalization, Other)
  Sender: FDA-Public Use
  Company Number: FR-ELI_LILLY_AND_COMPANY-FR201304003609

PATIENT
  Age: 33 Year
  Sex: Female

DRUGS (1)
  1. UMATROPE [Suspect]
     Dosage: UNK

REACTIONS (1)
  - Cerebrovascular accident [Unknown]
